FAERS Safety Report 9088613 (Version 1)
Quarter: 2013Q1

REPORT INFORMATION
  Report Type: Report from Study
  Country: CA (occurrence: CA)
  Receive Date: 20130201
  Receipt Date: 20130201
  Transmission Date: 20140127
  Serious: Yes (Hospitalization)
  Sender: FDA-Public Use
  Company Number: CA-ABBOTT-13P-028-1043254-00

PATIENT
  Sex: Male

DRUGS (3)
  1. HUMIRA [Suspect]
     Indication: CROHN^S DISEASE
     Route: 058
     Dates: start: 20080610, end: 2012
  2. HUMIRA [Suspect]
     Dates: start: 2012, end: 201301
  3. ATIVAN [Concomitant]
     Indication: INSOMNIA
     Route: 048

REACTIONS (10)
  - Malnutrition [Recovering/Resolving]
  - Haemorrhage [Recovering/Resolving]
  - Abscess [Recovering/Resolving]
  - Tremor [Recovered/Resolved]
  - Dizziness [Recovered/Resolved]
  - Hypoaesthesia [Recovered/Resolved]
  - Nausea [Recovered/Resolved]
  - Hypoaesthesia [Recovered/Resolved]
  - Weight fluctuation [Not Recovered/Not Resolved]
  - Muscle twitching [Recovered/Resolved]
